FAERS Safety Report 24079090 (Version 1)
Quarter: 2024Q3

REPORT INFORMATION
  Report Type: Spontaneous
  Country: US (occurrence: US)
  Receive Date: 20240711
  Receipt Date: 20240711
  Transmission Date: 20241017
  Serious: Yes (Hospitalization, Other)
  Sender: PFIZER
  Company Number: US-PFIZER INC-2021458218

PATIENT
  Age: 37 Year
  Sex: Female

DRUGS (5)
  1. MARCAINE [Suspect]
     Active Substance: BUPIVACAINE HYDROCHLORIDE
     Indication: Epidural anaesthesia
     Dosage: 15 ML
     Route: 008
  2. EPHEDRINE SULFATE [Suspect]
     Active Substance: EPHEDRINE SULFATE
     Dosage: 20 MG
     Route: 042
  3. PROMETHAZINE HYDROCHLORIDE [Suspect]
     Active Substance: PROMETHAZINE HYDROCHLORIDE
     Dosage: 25 MG
  4. PITOCIN [Suspect]
     Active Substance: OXYTOCIN
     Indication: Labour induction
     Dosage: 870 MIU (STARTED 8 HOURS AFTER ADMISSION AND REACHED A MAXIMUM DOSE OF 8MU/MIN, TOTAL 870MIU)
     Route: 042
  5. PITOCIN [Suspect]
     Active Substance: OXYTOCIN
     Dosage: UNK
     Route: 042

REACTIONS (1)
  - Myocardial infarction [Recovered/Resolved]
